FAERS Safety Report 19444633 (Version 2)
Quarter: 2021Q2

REPORT INFORMATION
  Report Type: Spontaneous
  Country: DK (occurrence: DK)
  Receive Date: 20210621
  Receipt Date: 20210628
  Transmission Date: 20210717
  Serious: Yes (Other)
  Sender: FDA-Public Use
  Company Number: DK-MYLANLABS-2021M1035377

PATIENT
  Age: 25 Year
  Sex: Male

DRUGS (15)
  1. GUSELKUMAB [Suspect]
     Active Substance: GUSELKUMAB
     Indication: PRODUCT USED FOR UNKNOWN INDICATION
     Dosage: 100 MILLIGRAM AT WEEK ZERO
     Route: 058
     Dates: start: 201904
  2. GUSELKUMAB [Suspect]
     Active Substance: GUSELKUMAB
     Dosage: 100 MILLIGRAM AT WEEK FOUR
     Route: 058
  3. DICLOXACILLINE [Suspect]
     Active Substance: DICLOXACILLIN
     Indication: HIDRADENITIS
     Dosage: UNKNOWN
     Route: 065
  4. AZATHIOPRINE. [Suspect]
     Active Substance: AZATHIOPRINE
     Indication: HIDRADENITIS
     Dosage: UNKNOWN
     Route: 065
  5. CIPROFLOXACIN. [Suspect]
     Active Substance: CIPROFLOXACIN
     Indication: HIDRADENITIS
     Dosage: UNKNOWN
     Route: 065
  6. METRONIDAZOLE. [Suspect]
     Active Substance: METRONIDAZOLE
     Indication: HIDRADENITIS
     Dosage: UNKNOWN
     Route: 065
  7. ADALIMUMAB [Suspect]
     Active Substance: ADALIMUMAB
     Indication: HIDRADENITIS
     Dosage: UNKNOWN
     Route: 065
  8. PENICILLINE                        /00000901/ [Suspect]
     Active Substance: PENICILLIN G
     Indication: HIDRADENITIS
     Dosage: UNKNOWN
     Route: 065
  9. GUSELKUMAB [Suspect]
     Active Substance: GUSELKUMAB
     Dosage: 100 MILLIGRAM PER 8 WEEKS (MAINTENANCE DOSE)
     Route: 058
  10. TETRACYCLINE [Suspect]
     Active Substance: TETRACYCLINE
     Indication: HIDRADENITIS
     Dosage: UNKNOWN
     Route: 065
  11. GUSELKUMAB [Suspect]
     Active Substance: GUSELKUMAB
     Dosage: 100 MILLIGRAM PER 6 WEEKS
     Route: 058
  12. CLINDAMYCIN. [Suspect]
     Active Substance: CLINDAMYCIN
     Indication: HIDRADENITIS
     Dosage: UNKNOWN
     Route: 065
  13. USTEKINUMAB [Suspect]
     Active Substance: USTEKINUMAB
     Indication: HIDRADENITIS
     Dosage: UNKNOWN
     Route: 065
  14. DOXYCYCLINE. [Suspect]
     Active Substance: DOXYCYCLINE
     Indication: HIDRADENITIS
     Dosage: UNKNOWN
     Route: 065
  15. RIFAMPICIN [Suspect]
     Active Substance: RIFAMPIN
     Indication: HIDRADENITIS
     Dosage: UNKNOWN
     Route: 065

REACTIONS (4)
  - Pyrexia [Unknown]
  - Abdominal pain [Unknown]
  - Drug ineffective [Unknown]
  - Hidradenitis [Recovering/Resolving]
